FAERS Safety Report 25858274 (Version 1)
Quarter: 2025Q3

REPORT INFORMATION
  Report Type: Spontaneous
  Country: JP (occurrence: JP)
  Receive Date: 20250929
  Receipt Date: 20250929
  Transmission Date: 20251021
  Serious: Yes (Hospitalization)
  Sender: MERCK SHARP & DOHME LLC
  Company Number: JP-009507513-2305206

PATIENT
  Age: 5 Decade
  Sex: Female

DRUGS (5)
  1. KEYTRUDA [Suspect]
     Active Substance: PEMBROLIZUMAB
     Indication: Bile duct cancer
     Route: 041
     Dates: start: 202410, end: 202506
  2. KEYTRUDA [Suspect]
     Active Substance: PEMBROLIZUMAB
     Indication: Bile duct cancer
     Route: 041
     Dates: start: 202508
  3. GEMCITABINE [Suspect]
     Active Substance: GEMCITABINE
     Dates: start: 202410, end: 202506
  4. GEMCITABINE [Suspect]
     Active Substance: GEMCITABINE
     Dates: start: 202508
  5. CISPLATIN [Concomitant]
     Active Substance: CISPLATIN
     Dates: start: 202410, end: 202504

REACTIONS (1)
  - Appendicitis [Recovered/Resolved]

NARRATIVE: CASE EVENT DATE: 20250701
